FAERS Safety Report 20815791 (Version 1)
Quarter: 2022Q2

REPORT INFORMATION
  Report Type: Spontaneous
  Country: US (occurrence: None)
  Receive Date: 20220511
  Receipt Date: 20220511
  Transmission Date: 20220721
  Serious: Yes (Other)
  Sender: FDA-Public Use
  Company Number: US-Fresenius Kabi-FK202205402

PATIENT
  Age: 17 Year
  Sex: Female

DRUGS (12)
  1. BLEOMYCIN [Suspect]
     Active Substance: BLEOMYCIN SULFATE
     Indication: Hodgkin^s disease
     Dosage: ABVE-PC REGIMEN
  2. BLEOMYCIN [Suspect]
     Active Substance: BLEOMYCIN SULFATE
     Indication: Vanishing bile duct syndrome
  3. ETOPOSIDE [Suspect]
     Active Substance: ETOPOSIDE
     Indication: Hodgkin^s disease
     Dosage: ABVE-PC REGIMEN
  4. ETOPOSIDE [Suspect]
     Active Substance: ETOPOSIDE
     Indication: Vanishing bile duct syndrome
  5. DOXORUBICIN [Suspect]
     Active Substance: DOXORUBICIN
     Indication: Hodgkin^s disease
     Dosage: ABVE-PC REGIMEN
  6. DOXORUBICIN [Suspect]
     Active Substance: DOXORUBICIN
     Indication: Vanishing bile duct syndrome
  7. PREDNISONE [Suspect]
     Active Substance: PREDNISONE
     Indication: Hodgkin^s disease
     Dosage: ABVE-PC REGIMEN
  8. PREDNISONE [Suspect]
     Active Substance: PREDNISONE
     Indication: Vanishing bile duct syndrome
  9. CYCLOPHOSPHAMIDE [Suspect]
     Active Substance: CYCLOPHOSPHAMIDE
     Indication: Hodgkin^s disease
     Dosage: ABVE-PC REGIMEN
  10. CYCLOPHOSPHAMIDE [Suspect]
     Active Substance: CYCLOPHOSPHAMIDE
     Indication: Vanishing bile duct syndrome
  11. VITAMIN K [Concomitant]
     Active Substance: PHYTONADIONE
     Indication: Cholestasis
  12. URSODIOL [Concomitant]
     Active Substance: URSODIOL
     Indication: Cholestasis

REACTIONS (5)
  - Rectal haemorrhage [Unknown]
  - Vaginal haemorrhage [Unknown]
  - Cytopenia [Unknown]
  - Bilirubin conjugated increased [Recovered/Resolved]
  - Blood bilirubin increased [Recovered/Resolved]
